FAERS Safety Report 8828917 (Version 2)
Quarter: 2013Q2

REPORT INFORMATION
  Report Type: Report from Study
  Country: JP (occurrence: JP)
  Receive Date: 20121009
  Receipt Date: 20130510
  Transmission Date: 20140414
  Serious: Yes (Other)
  Sender: FDA-Public Use
  Company Number: JP-009507513-2012SP006155

PATIENT
  Age: 74 Year
  Sex: Female
  Weight: 50 kg

DRUGS (24)
  1. PEGINTERFERON ALFA-2B [Suspect]
     Indication: CHRONIC HEPATITIS C
     Dosage: 1.5 MICROGRAM PER KILOGRAM, QW,DAILY DOSE UNKNOWN
     Route: 058
     Dates: start: 20120124, end: 20120131
  2. PEGINTERFERON ALFA-2B [Suspect]
     Dosage: 1.5 MICROGRAM PER KILOGRAM, QW,DAILY DOSE UNKNOWN
     Route: 058
     Dates: start: 20120214, end: 20120710
  3. REBETOL [Suspect]
     Indication: CHRONIC HEPATITIS C
     Dosage: 600 MG, QD
     Route: 048
     Dates: start: 20120124, end: 20120131
  4. REBETOL [Suspect]
     Dosage: 400 MG, QD
     Route: 048
     Dates: start: 20120214, end: 20120305
  5. REBETOL [Suspect]
     Dosage: 200 MG, QD
     Route: 048
     Dates: start: 20120306, end: 20120312
  6. REBETOL [Suspect]
     Dosage: 300 MG, QD
     Route: 048
     Dates: start: 20120313, end: 20120409
  7. REBETOL [Suspect]
     Dosage: 200 MG, QD
     Route: 048
     Dates: start: 20120410, end: 20120507
  8. REBETOL [Suspect]
     Dosage: 400 MG, QD
     Route: 048
     Dates: start: 20120508, end: 20120528
  9. REBETOL [Suspect]
     Dosage: 600 MG, QD
     Route: 048
     Dates: start: 20120529, end: 20120709
  10. TELAVIC [Suspect]
     Indication: CHRONIC HEPATITIS C
     Dosage: 1500 MG, QD
     Route: 048
     Dates: start: 20120124, end: 20120131
  11. TELAVIC [Suspect]
     Dosage: 750 MG, QD
     Route: 048
     Dates: start: 20120214, end: 20120217
  12. TELAVIC [Suspect]
     Dosage: 1000 MG, QD
     Route: 048
     Dates: start: 20120218, end: 20120321
  13. TELAVIC [Suspect]
     Dosage: 1500 MG,QD
     Route: 048
     Dates: start: 20120322, end: 20120417
  14. SEDEKOPAN [Concomitant]
     Indication: INSOMNIA
     Dosage: 1 MG, QD
     Route: 048
  15. CONIEL [Concomitant]
     Indication: HYPERTENSION
     Dosage: FORMULATION: POR
     Route: 048
     Dates: start: 20120124, end: 20120125
  16. MYSLEE [Concomitant]
     Indication: INSOMNIA
     Dosage: 5 MG, QD,FORMULATION: POR
     Route: 048
     Dates: start: 20120124
  17. MYSLEE [Concomitant]
     Dosage: 10 MG, QD,FORMULATION: POR
     Route: 048
  18. GASMOTIN [Concomitant]
     Indication: NAUSEA
     Dosage: 15 MG, QD
     Route: 048
     Dates: start: 20120125
  19. OMEPRAL [Concomitant]
     Indication: NAUSEA
     Dosage: 20 MG, QD
     Route: 048
     Dates: start: 20120126
  20. SULPIRIDE [Concomitant]
     Indication: DECREASED APPETITE
     Dosage: 150 MG, QD
     Route: 048
     Dates: start: 20120130, end: 20120305
  21. ALLOPURINOL SODIUM [Concomitant]
     Indication: HYPERURICAEMIA
     Dosage: 300 MG, QD,FORMULATION:POR
     Route: 048
     Dates: start: 20120204, end: 20120210
  22. ALLOPURINOL SODIUM [Concomitant]
     Dosage: 200 MG,QD
     Route: 048
     Dates: start: 20120211, end: 20120215
  23. ALLOPURINOL SODIUM [Concomitant]
     Dosage: 100 MG, QD,FORMULATION:POR
     Dates: start: 20120116, end: 20120220
  24. ALLOPURINOL SODIUM [Concomitant]
     Dosage: 200 MG, QD,FORMULATION:POR
     Route: 048
     Dates: start: 20120222

REACTIONS (2)
  - Blood uric acid increased [Recovered/Resolved]
  - Renal failure acute [Recovering/Resolving]
